FAERS Safety Report 26163185 (Version 1)
Quarter: 2025Q4

REPORT INFORMATION
  Report Type: Spontaneous
  Country: JP (occurrence: JP)
  Receive Date: 20251216
  Receipt Date: 20251216
  Transmission Date: 20260117
  Serious: Yes (Hospitalization)
  Sender: OTSUKA
  Company Number: JP-MMM-Otsuka-GSIHMFR8

PATIENT
  Age: 88 Year
  Sex: Female
  Weight: 35.4 kg

DRUGS (9)
  1. REXULTI [Suspect]
     Active Substance: BREXPIPRAZOLE
     Indication: Depression
     Dosage: 0.5 MG, QD
     Route: 061
     Dates: start: 20251112, end: 20251120
  2. Zinc acetate tablets (25) [Concomitant]
     Indication: Product used for unknown indication
     Dosage: 2 TABLETS (50 MG), DAILY
     Route: 065
     Dates: start: 20251112
  3. Calonal (300) [Concomitant]
     Indication: Product used for unknown indication
     Dosage: 3 TABLETS (900 MG), DAILY
     Route: 065
     Dates: start: 20251118, end: 20251126
  4. Amlodipine OD (2.5) [Concomitant]
     Indication: Product used for unknown indication
     Dosage: 1 TABLET (2.5 MG)
     Route: 065
  5. LAC-B Granular Powder [Concomitant]
     Indication: Product used for unknown indication
     Dosage: 3 G, DAILY
     Route: 065
  6. mosapride citrate (5) [Concomitant]
     Indication: Product used for unknown indication
     Dosage: 3 TABLET (15 MG), DAILY
     Route: 065
  7. Dayvigo (2.5) [Concomitant]
     Indication: Product used for unknown indication
     Dosage: 1 TABLET (2.5 MG), DAILY
     Route: 065
  8. ramelteon (8) [Concomitant]
     Indication: Product used for unknown indication
     Dosage: 1 TABLET (8 MG), DAILY
     Route: 065
  9. Picosulfate oral solution [Concomitant]
     Indication: Product used for unknown indication
     Dosage: UNK
     Route: 065

REACTIONS (1)
  - Pyrexia [Recovered/Resolved]

NARRATIVE: CASE EVENT DATE: 20251116
